FAERS Safety Report 23039621 (Version 1)
Quarter: 2023Q4

REPORT INFORMATION
  Report Type: Spontaneous
  Country: FR (occurrence: FR)
  Receive Date: 20231006
  Receipt Date: 20231006
  Transmission Date: 20240109
  Serious: Yes (Death)
  Sender: FDA-Public Use
  Company Number: FR-AFSSAPS-RE2023000561

PATIENT
  Age: 57 Year
  Sex: Female
  Weight: 95 kg

DRUGS (6)
  1. RISPERIDONE [Suspect]
     Active Substance: RISPERIDONE
     Indication: Schizophrenia
     Dosage: 6 MILLIGRAM, DAILY
     Route: 048
     Dates: start: 20230424, end: 20230430
  2. RISPERIDONE [Suspect]
     Active Substance: RISPERIDONE
     Dosage: 4 MILLIGRAM, DAILY
     Route: 048
     Dates: start: 20230412, end: 20230424
  3. PRAZEPAM [Suspect]
     Active Substance: PRAZEPAM
     Indication: Anxiolytic therapy
     Dosage: 20 MILLIGRAM, DAILY
     Route: 048
     Dates: start: 2018, end: 20230413
  4. PRAZEPAM [Suspect]
     Active Substance: PRAZEPAM
     Route: 048
     Dates: start: 20230413, end: 20230430
  5. LOXAPINE [Suspect]
     Active Substance: LOXAPINE
     Indication: Schizophrenia
     Dosage: 300 MILLIGRAM, DAILY
     Route: 048
     Dates: start: 20230424, end: 20230430
  6. LOXAPINE [Suspect]
     Active Substance: LOXAPINE
     Dosage: 250 MILLIGRAM, DAILY
     Route: 048
     Dates: start: 20230412, end: 20230424

REACTIONS (1)
  - Dysphagia [Fatal]

NARRATIVE: CASE EVENT DATE: 20230430
